FAERS Safety Report 11807611 (Version 1)
Quarter: 2015Q4

REPORT INFORMATION
  Report Type: Spontaneous
  Country: DE (occurrence: DE)
  Receive Date: 20151207
  Receipt Date: 20151207
  Transmission Date: 20160305
  Serious: Yes (Disabling)
  Sender: FDA-Public Use
  Company Number: DE-ASTRAZENECA-2015SF21200

PATIENT
  Sex: Male

DRUGS (1)
  1. EKLIRA GENUAIR [Suspect]
     Active Substance: ACLIDINIUM BROMIDE
     Indication: CHRONIC OBSTRUCTIVE PULMONARY DISEASE
     Route: 055
     Dates: start: 20150810

REACTIONS (7)
  - Sexual dysfunction [Unknown]
  - Product quality issue [Unknown]
  - Dyspnoea [Unknown]
  - Gait disturbance [Unknown]
  - Pulmonary function test decreased [Unknown]
  - Fatigue [Unknown]
  - Incorrect dose administered by device [Unknown]
